FAERS Safety Report 25881964 (Version 1)
Quarter: 2025Q4

REPORT INFORMATION
  Report Type: Report from Study
  Country: EU (occurrence: EU)
  Receive Date: 20251005
  Receipt Date: 20251005
  Transmission Date: 20260118
  Serious: Yes (Hospitalization)
  Sender: ABBVIE
  Company Number: EU-ABBVIE-6417642

PATIENT
  Age: 24 Year
  Sex: Female

DRUGS (4)
  1. SKYRIZI [Suspect]
     Active Substance: RISANKIZUMAB-RZAA
     Indication: Crohn^s disease
     Dosage: DOSE FORM: SOLUTION FOR INJECTION IN CARTRIDGE
     Route: 058
     Dates: start: 20250513
  2. AMITRIPTYLINE [Concomitant]
     Active Substance: AMITRIPTYLINE
     Indication: Pain management
     Route: 048
     Dates: start: 202410
  3. NEBIVOLOL [Concomitant]
     Active Substance: NEBIVOLOL
     Indication: Migraine
     Route: 048
     Dates: start: 2023
  4. DESOGESTREL [Concomitant]
     Active Substance: DESOGESTREL
     Indication: Endometriosis
     Route: 048
     Dates: start: 2023

REACTIONS (4)
  - Meniscus injury [Recovered/Resolved]
  - Rhinorrhoea [Recovered/Resolved]
  - Injection site swelling [Recovered/Resolved]
  - Oropharyngeal pain [Recovered/Resolved]

NARRATIVE: CASE EVENT DATE: 20250805
